FAERS Safety Report 9479295 (Version 1)
Quarter: 2013Q3

REPORT INFORMATION
  Report Type: Spontaneous
  Country: GB (occurrence: GB)
  Receive Date: 20130827
  Receipt Date: 20130827
  Transmission Date: 20140515
  Serious: Yes (Disabling, Other)
  Sender: FDA-Public Use
  Company Number: GB-WATSON-2013-15092

PATIENT
  Age: 34 Year
  Sex: Male

DRUGS (1)
  1. CIPROFLOXACIN HYDROCHLORIDE (UNKNOWN) [Suspect]
     Indication: EPIDIDYMITIS
     Dosage: 500 MG, BID
     Route: 048
     Dates: start: 20130121, end: 20130122

REACTIONS (19)
  - Pain [Unknown]
  - Tendonitis [Unknown]
  - Joint crepitation [Unknown]
  - Myalgia [Unknown]
  - Muscular weakness [Unknown]
  - Eye pain [Unknown]
  - Abnormal sensation in eye [Unknown]
  - Visual acuity reduced [Unknown]
  - Tinnitus [Unknown]
  - Ear pain [Unknown]
  - Toothache [Unknown]
  - Mucous membrane disorder [Unknown]
  - Anxiety [Unknown]
  - Tendon pain [Unknown]
  - Insomnia [Unknown]
  - Disturbance in sexual arousal [Unknown]
  - Abasia [Unknown]
  - Impaired driving ability [Unknown]
  - Condition aggravated [Unknown]
